FAERS Safety Report 15274152 (Version 2)
Quarter: 2018Q3

REPORT INFORMATION
  Report Type: Report from Study
  Country: AR (occurrence: AR)
  Receive Date: 20180814
  Receipt Date: 20180917
  Transmission Date: 20181010
  Serious: Yes (Death)
  Sender: FDA-Public Use
  Company Number: AR-INCYTE CORPORATION-2018IN008105

PATIENT

DRUGS (2)
  1. INC424 [Suspect]
     Active Substance: RUXOLITINIB
     Dosage: UNK
     Route: 065
  2. INC424 [Suspect]
     Active Substance: RUXOLITINIB
     Indication: GRAFT VERSUS HOST DISEASE
     Route: 065

REACTIONS (3)
  - Disease recurrence [Fatal]
  - Graft versus host disease [Fatal]
  - Product use in unapproved indication [Unknown]
